FAERS Safety Report 9880445 (Version 1)
Quarter: 2014Q1

REPORT INFORMATION
  Report Type: Spontaneous
  Country: GB (occurrence: GB)
  Receive Date: 20140207
  Receipt Date: 20140207
  Transmission Date: 20141002
  Serious: Yes (Other)
  Sender: FDA-Public Use
  Company Number: GB-JNJFOC-20140118503

PATIENT
  Age: 3 Year
  Sex: Female

DRUGS (3)
  1. CALPOL SUGAR FREE INFANT SUSPENSION [Suspect]
     Route: 065
  2. CALPOL SUGAR FREE INFANT SUSPENSION [Suspect]
     Indication: PYREXIA
     Route: 065
     Dates: start: 2011
  3. NUROFEN [Concomitant]
     Indication: EAR PAIN
     Dosage: AS NEEDED
     Route: 065

REACTIONS (1)
  - Coeliac disease [Unknown]
